FAERS Safety Report 9290649 (Version 1)
Quarter: 2013Q2

REPORT INFORMATION
  Report Type: Spontaneous
  Country: US (occurrence: US)
  Receive Date: 20130515
  Receipt Date: 20130515
  Transmission Date: 20140414
  Serious: No
  Sender: FDA-Public Use
  Company Number: US-BAYER-2013-060061

PATIENT
  Sex: Female

DRUGS (1)
  1. GIANVI [Suspect]

REACTIONS (1)
  - Drug administration error [None]
